FAERS Safety Report 7398726-3 (Version None)
Quarter: 2011Q2

REPORT INFORMATION
  Report Type: 
  Country: None (occurrence: None)
  Receive Date: 20110407
  Receipt Date: 20110329
  Transmission Date: 20111010
  Serious: Yes (Hospitalization)
  Sender: FDA-Public Use
  Company Number: US-BIOGENIDEC-2011BI011882

PATIENT
  Age: 35 Year
  Sex: Female

DRUGS (2)
  1. PAIN MEDICATION NOS [Concomitant]
  2. AVONEX [Suspect]
     Indication: MULTIPLE SCLEROSIS
     Route: 030
     Dates: start: 20100421

REACTIONS (2)
  - MULTIPLE SCLEROSIS RELAPSE [None]
  - PRURITUS ALLERGIC [None]
